FAERS Safety Report 5347269-7 (Version None)
Quarter: 2007Q2

REPORT INFORMATION
  Report Type: 
  Country: None (occurrence: None)
  Receive Date: 20070606
  Receipt Date: 20070530
  Transmission Date: 20071010
  Serious: Yes (Hospitalization)
  Sender: FDA-Public Use
  Company Number: PHHO2007IT02981

PATIENT
  Age: 73 Year
  Sex: Female
  Weight: 115 kg

DRUGS (1)
  1. TAMOXIFEN CITRATE [Suspect]
     Indication: BREAST CANCER
     Dosage: DOUBLE BLIND
     Route: 048
     Dates: start: 20021209, end: 20070124

REACTIONS (8)
  - BLOOD FIBRINOGEN INCREASED [None]
  - BUNDLE BRANCH BLOCK LEFT [None]
  - DIABETES MELLITUS [None]
  - DYSPNOEA [None]
  - FIBRIN D DIMER INCREASED [None]
  - OEDEMA PERIPHERAL [None]
  - PULMONARY EMBOLISM [None]
  - TACHYCARDIA [None]
